FAERS Safety Report 18112372 (Version 1)
Quarter: 2020Q3

REPORT INFORMATION
  Report Type: Other
  Country: US (occurrence: US)
  Receive Date: 20200805
  Receipt Date: 20200805
  Transmission Date: 20201103
  Serious: Yes (Hospitalization)
  Sender: FDA-Public Use
  Company Number: US-ROCHE-2648341

PATIENT
  Age: 46 Year
  Sex: Male

DRUGS (26)
  1. LYRICA [Concomitant]
     Active Substance: PREGABALIN
     Dosage: TAKE 1 CAP BY MOUTH 3 TIMES DAILY FOR 30 DAYS
  2. ERGOCALCIFEROL. [Concomitant]
     Active Substance: ERGOCALCIFEROL
     Dosage: TAKE 50000 UNITS BY MOUTH ONCE A WEEK ON FRIDAYS
  3. VYVANSE [Concomitant]
     Active Substance: LISDEXAMFETAMINE DIMESYLATE
     Dosage: TAKE 50 MG BY MOUTH 2 TIMES DAILY
  4. SEROQUEL [Concomitant]
     Active Substance: QUETIAPINE FUMARATE
     Dosage: TAKE 25 MG BY MOUTH 2 TIMES DAILY
  5. VITAMIN C [Concomitant]
     Active Substance: ASCORBIC ACID
     Dosage: TAKE 1 TAB BY MOUTH DAILY
  6. BENTYL [Concomitant]
     Active Substance: DICYCLOMINE HYDROCHLORIDE
     Dosage: TAKE 10 MG BY MOUTH 4 TIMES DAILY AS NEEDED (ABDOMINAL PAIN)
  7. CREON [Concomitant]
     Active Substance: PANCRELIPASE AMYLASE\PANCRELIPASE LIPASE\PANCRELIPASE PROTEASE
     Dosage: TAKE 2 CAPSULES BY MOUTH DAILY AS NEEDED (W/SNACKS)
  8. PROTONIX [Concomitant]
     Active Substance: PANTOPRAZOLE SODIUM
     Dosage: TAKE 40 MG BY MOUTH DAILY
  9. GABAPENTIN. [Concomitant]
     Active Substance: GABAPENTIN
     Indication: NEURALGIA
     Dates: start: 2015
  10. DEPAKOTE ER [Concomitant]
     Active Substance: DIVALPROEX SODIUM
     Dosage: 500 MG EXTENDED RELEASE TABLET, TAKE 2000 MG BY MOUTH DAILY
  11. TURMERIC [Concomitant]
     Active Substance: HERBALS\TURMERIC
     Dosage: 1 TAB BY MOUTH DAILY
  12. CLONAZEPAM. [Concomitant]
     Active Substance: CLONAZEPAM
     Indication: RESTLESS LEGS SYNDROME
     Route: 048
     Dates: start: 2018
  13. DITROPAN XL [Concomitant]
     Active Substance: OXYBUTYNIN CHLORIDE
     Dosage: TAKE 10MG BY MOUTH NIGHTLY
  14. ZINC. [Concomitant]
     Active Substance: ZINC
     Dosage: 1 TAB BY MOUTH DAILY
  15. ASTELIN [Concomitant]
     Active Substance: AZELASTINE HYDROCHLORIDE
     Dosage: 2 SPRAY BY NASAL ROUTE 2 TIMES IN A DAY
     Route: 045
  16. STRATTERA [Concomitant]
     Active Substance: ATOMOXETINE HYDROCHLORIDE
     Dosage: TAKE 40 MG BY MOUTH DAILY
  17. SALAGEN [Concomitant]
     Active Substance: PILOCARPINE HYDROCHLORIDE
     Dosage: TAKE 7.5 MG 2 TIMES DAILY BY MOUTH
  18. OCREVUS [Suspect]
     Active Substance: OCRELIZUMAB
     Indication: PRIMARY PROGRESSIVE MULTIPLE SCLEROSIS
     Dosage: ONGOING: YES. DATE OF TREATMENT : 27/JAN/2020, 13/JAN/2020.
     Route: 042
     Dates: start: 20200113
  19. LIORESAL [Concomitant]
     Active Substance: BACLOFEN
     Dosage: TAKE 20 MG BY MOUTH 3 TIMES A DAY
  20. SYNTHROID [Concomitant]
     Active Substance: LEVOTHYROXINE SODIUM
     Dosage: TAKE 150 MCG BY MOUTH NIGHTLY
  21. CREON [Concomitant]
     Active Substance: PANCRELIPASE AMYLASE\PANCRELIPASE LIPASE\PANCRELIPASE PROTEASE
     Dosage: TAKE 3 CAPSULES BY MOUTH 2 TIMES DAILY (WITH MEALS)
  22. VIAGRA [Concomitant]
     Active Substance: SILDENAFIL CITRATE
     Dosage: TAKE 1 TAB BY MOUTH AS NEEDED FOR ERECTILE DYSFUNCTION
  23. PILOCARPINE. [Concomitant]
     Active Substance: PILOCARPINE
     Indication: SJOGREN^S SYNDROME
     Dosage: ONGOING: YES TAKEN AS NEEDED IN BOTH EYES
     Route: 047
     Dates: start: 2017
  24. KLONOPIN [Concomitant]
     Active Substance: CLONAZEPAM
     Dosage: TAKE 1 TAB BY MOUTH 3 TIMES DAILY AS NEEDED (SEIZURES)
  25. ZYRTEC [Concomitant]
     Active Substance: CETIRIZINE HYDROCHLORIDE
     Indication: HYPERSENSITIVITY
     Dosage: TAKE 10 MG BY MOUTH DAILY AS NEEDED FOR ALLERGIES
  26. BACLOFEN. [Concomitant]
     Active Substance: BACLOFEN
     Indication: TREMOR
     Dosage: UP TO 4 PILLS AS NEEDED
     Route: 048
     Dates: start: 201905

REACTIONS (7)
  - Vision blurred [Recovered/Resolved]
  - Tremor [Recovered/Resolved]
  - Dysarthria [Recovered/Resolved]
  - Fatigue [Recovered/Resolved]
  - Pain [Recovered/Resolved]
  - Pancreatitis [Unknown]
  - Amnesia [Recovered/Resolved]

NARRATIVE: CASE EVENT DATE: 202002
